FAERS Safety Report 15211338 (Version 1)
Quarter: 2018Q3

REPORT INFORMATION
  Report Type: Spontaneous
  Country: US (occurrence: US)
  Receive Date: 20180630
  Receipt Date: 20180630
  Transmission Date: 20181010
  Serious: Yes (Hospitalization)
  Sender: FDA-Public Use
  Company Number: None

PATIENT
  Age: 86 Year
  Sex: Male

DRUGS (3)
  1. APIXABAN [Suspect]
     Active Substance: APIXABAN
     Route: 048
     Dates: start: 20170718
  2. APIXABAN [Suspect]
     Active Substance: APIXABAN
     Indication: ATRIAL FLUTTER
     Route: 048
     Dates: start: 20170718, end: 20180531
  3. APIXABAN [Suspect]
     Active Substance: APIXABAN
     Route: 048

REACTIONS (2)
  - Haemorrhage [None]
  - Haemorrhage intracranial [None]

NARRATIVE: CASE EVENT DATE: 20180531
